FAERS Safety Report 8181623-3 (Version None)
Quarter: 2012Q1

REPORT INFORMATION
  Report Type: 
  Country: None (occurrence: None)
  Receive Date: 20120302
  Receipt Date: 20120227
  Transmission Date: 20120608
  Serious: Yes (Death, Hospitalization, Other)
  Sender: FDA-Public Use
  Company Number: US-GENZYME-MOZO-1000579

PATIENT
  Sex: Male
  Weight: 80.1 kg

DRUGS (71)
  1. MOZOBIL [Suspect]
     Indication: HAEMATOPOIETIC STEM CELL MOBILISATION
  2. ACETAMINOPHEN [Concomitant]
     Indication: PROPHYLAXIS
     Dosage: 975 MG, QD
     Route: 048
     Dates: start: 20110830, end: 20110830
  3. LOPERAMIDE HCL [Concomitant]
     Indication: DIARRHOEA
     Dosage: 2 MG, QD
     Route: 048
     Dates: start: 20110901, end: 20110901
  4. ROSUVASTATIN [Concomitant]
     Indication: PRODUCT USED FOR UNKNOWN INDICATION
     Dosage: 10 MG, QD
     Route: 048
     Dates: start: 20110901, end: 20111017
  5. ISOSORBIDE MONONITRATE [Concomitant]
     Indication: PROPHYLAXIS
     Dosage: 120 MG, QD
     Route: 048
     Dates: start: 20110901, end: 20110922
  6. METOPROLOL SUCCINATE [Concomitant]
     Indication: TACHYPNOEA
     Dosage: 5 MG, QD
     Route: 042
     Dates: start: 20110929, end: 20111004
  7. LORAZEPAM [Concomitant]
     Indication: PREMEDICATION
     Dosage: 1 MG, QD
     Route: 042
     Dates: start: 20110926, end: 20110926
  8. MEROPENEM [Concomitant]
     Indication: FEBRILE NEUTROPENIA
     Dosage: 500 MG, QID
     Route: 042
     Dates: start: 20110930, end: 20111017
  9. GASTROGRAFIN [Concomitant]
     Indication: COMPUTERISED TOMOGRAM ABDOMEN
     Dosage: 15 ML, QD
     Route: 048
     Dates: start: 20110930, end: 20110930
  10. ACETAMINOPHEN [Concomitant]
     Indication: HEADACHE
     Dosage: 650 MG, QD
     Route: 048
     Dates: start: 20110901, end: 20110925
  11. PHYTONADIONE [Concomitant]
     Dosage: 10 MG, QD
     Route: 048
     Dates: start: 20111001, end: 20111001
  12. MAGNESIUM SULFATE [Concomitant]
     Indication: HYPOMAGNESAEMIA
     Dosage: 4 G, QD
     Route: 042
     Dates: start: 20110830, end: 20111016
  13. MAGNESIUM SULFATE [Concomitant]
     Dosage: 2 G, QD
     Route: 042
     Dates: start: 20110924, end: 20110925
  14. CEFEPIME [Concomitant]
     Indication: PROPHYLAXIS
     Dosage: 50 ML, TID
     Route: 042
     Dates: start: 20110831, end: 20110907
  15. RANEXA [Concomitant]
     Dosage: 1000 MG, BID
     Route: 048
     Dates: start: 20110902, end: 20110922
  16. FUROSEMIDE [Concomitant]
     Indication: PROPHYLAXIS
     Dosage: 40 MG, QD
     Route: 042
     Dates: start: 20110910, end: 20111014
  17. FUROSEMIDE [Concomitant]
     Dosage: 40 UNK, BID
     Dates: start: 20111007, end: 20111017
  18. ALLOPURINOL [Concomitant]
     Indication: ACIDOSIS
     Dosage: 300 MG, QD
     Route: 048
     Dates: start: 20110929, end: 20110930
  19. METOPROLOL SUCCINATE [Concomitant]
     Indication: CORONARY ARTERY DISEASE
     Dosage: 100 MG, QD
     Route: 048
     Dates: start: 20110901, end: 20110922
  20. VANCOMYCIN [Concomitant]
     Indication: THROMBOPHLEBITIS
     Dosage: 1250 MG, BID
     Route: 042
     Dates: start: 20110905, end: 20110906
  21. HYDROMORPHONE HCL [Concomitant]
     Dosage: 0.5 MG, UNK
     Route: 042
     Dates: start: 20110911, end: 20110912
  22. MOZOBIL [Suspect]
     Indication: ACUTE MYELOID LEUKAEMIA
     Dosage: 46.6 MG, UNK
     Route: 042
     Dates: start: 20110902, end: 20111008
  23. FUROSEMIDE [Concomitant]
     Dosage: 40 MG, QD
     Route: 042
     Dates: start: 20110914, end: 20111016
  24. RAMIPRIL [Concomitant]
     Indication: CORONARY ARTERY DISEASE
     Dosage: 5 MG, QD
     Route: 048
     Dates: start: 20110901, end: 20110929
  25. METOPROLOL SUCCINATE [Concomitant]
     Dosage: 25 MG, QID
     Route: 048
     Dates: start: 20110930, end: 20111007
  26. DIGOXIN [Concomitant]
     Dosage: 100 MG, QD
     Route: 048
     Dates: start: 20111001, end: 20111014
  27. METRONIDAZOLE [Concomitant]
     Dosage: 500 MG, TID
     Route: 048
     Dates: start: 20110928, end: 20110930
  28. ACETAMINOPHEN [Concomitant]
     Dosage: 325 MG, QD
     Route: 048
     Dates: start: 20110905, end: 20111017
  29. PHYTONADIONE [Concomitant]
     Dosage: 1 MG, QD
     Route: 042
     Dates: start: 20110901, end: 20111010
  30. MAGNESIUM SULFATE [Concomitant]
     Dosage: 2 G, QD
     Route: 042
     Dates: start: 20110901, end: 20111015
  31. ALBUTEROL [Concomitant]
     Indication: DYSPNOEA
     Dosage: 3 ML, QID
     Route: 055
     Dates: start: 20110831, end: 20111012
  32. DIPHENHYDRAMINE HCL [Concomitant]
     Indication: PROPHYLAXIS
     Dosage: 25 MG, TID
     Route: 048
     Dates: start: 20110901, end: 20110905
  33. HEPARIN LOCK-FLUSH [Concomitant]
     Indication: INTRAVENOUS CATHETER MANAGEMENT
     Dosage: 30 U, QID
     Route: 042
     Dates: start: 20110901, end: 20110910
  34. VANCOMYCIN [Concomitant]
     Dosage: 250 MG, QID
     Route: 048
     Dates: start: 20110930, end: 20111012
  35. HYDROMORPHONE HCL [Concomitant]
     Indication: PAIN
     Dosage: 1 MG, QD
     Route: 042
     Dates: start: 20110911, end: 20110911
  36. POTASSIUM CHLORIDE [Concomitant]
     Dosage: 20 MEQ, BID
     Route: 042
     Dates: start: 20110920, end: 20111015
  37. POTASSIUM CHLORIDE [Concomitant]
     Dosage: 20 MEQ, PRN
     Route: 048
     Dates: start: 20110920, end: 20111003
  38. POTASSIUM CHLORIDE [Concomitant]
     Dosage: 40 MEQ, PRN
     Route: 048
     Dates: start: 20110924, end: 20111007
  39. ACETYLCYSTEINE [Concomitant]
     Indication: SUPPLEMENTATION THERAPY
     Dosage: 600 MG, QID
     Route: 048
     Dates: start: 20110930, end: 20111001
  40. MULTI-VITAMIN [Concomitant]
     Indication: SUPPLEMENTATION THERAPY
     Dosage: 1 UNK, QD
     Route: 048
     Dates: start: 20110930, end: 20111017
  41. METRONIDAZOLE [Concomitant]
     Dosage: 500 MG, TID
     Route: 042
     Dates: start: 20110930, end: 20110930
  42. IPRATROPIUM BROMIDE [Concomitant]
     Indication: WHEEZING
     Dosage: 2.5 ML, QD
     Route: 055
     Dates: start: 20110830, end: 20110922
  43. SODIUM CHLORIDE [Concomitant]
     Indication: INTRAVENOUS CATHETER MANAGEMENT
     Dosage: 10 ML, QD
     Route: 042
     Dates: start: 20110901, end: 20110922
  44. HYDROCORTISONE [Concomitant]
     Indication: DYSPNOEA
     Dosage: 50 MG, QD
     Route: 042
     Dates: start: 20110901, end: 20111017
  45. DECITABINE [Concomitant]
     Indication: ACUTE MYELOID LEUKAEMIA
     Dosage: 20 MG/M2, UNK
     Route: 042
     Dates: start: 20110902, end: 20111008
  46. PHYTONADIONE [Concomitant]
     Indication: PROPHYLAXIS
     Dosage: 5 MG, PRN
     Route: 042
     Dates: start: 20110830, end: 20110903
  47. IPRATROPIUM BROMIDE [Concomitant]
     Indication: LUNG DISORDER
     Dosage: 2.5 ML, QD
     Route: 055
     Dates: start: 20110908, end: 20111017
  48. ALBUTEROL [Concomitant]
     Dosage: 3 ML, QD
     Route: 055
     Dates: start: 20110908, end: 20110908
  49. ALBUTEROL [Concomitant]
     Dosage: 3 ML, QD
     Route: 055
     Dates: start: 20110919, end: 20110919
  50. RANEXA [Concomitant]
     Indication: CORONARY ARTERY DISEASE
     Dosage: 500 MG, BID
     Route: 048
     Dates: start: 20110831, end: 20110902
  51. FUROSEMIDE [Concomitant]
     Indication: HYPERTENSION
     Dosage: 20 MG, QD
     Route: 042
     Dates: start: 20110831, end: 20111013
  52. ALLOPURINOL [Concomitant]
     Indication: PRODUCT USED FOR UNKNOWN INDICATION
     Dosage: 200 MG, QD
     Route: 048
     Dates: start: 20110831, end: 20110916
  53. ISOSORBIDE MONONITRATE [Concomitant]
     Indication: CHEST PAIN
     Dosage: 120 MG, QD
     Route: 048
     Dates: start: 20110924, end: 20110929
  54. METOPROLOL SUCCINATE [Concomitant]
     Dosage: 50 MG, QID
     Route: 048
     Dates: start: 20111007, end: 20111017
  55. VORICONAZOLE [Concomitant]
     Indication: INFECTION PROPHYLAXIS
     Dosage: 200 MG, TID
     Route: 048
     Dates: start: 20110908, end: 20110916
  56. POTASSIUM CHLORIDE [Concomitant]
     Dosage: 10 MEQ, PRN
     Route: 048
     Dates: start: 20111004, end: 20111011
  57. PIPERACILLIN W [Concomitant]
     Indication: DIARRHOEA
     Dosage: 4.5 G, QD
     Route: 048
     Dates: start: 20110830, end: 20110830
  58. ACETAMINOPHEN [Concomitant]
     Indication: PYREXIA
     Dosage: 650 MG, QD
     Route: 048
     Dates: start: 20110830, end: 20111017
  59. FUROSEMIDE [Concomitant]
     Indication: OEDEMA
     Dosage: 20 MG, QD
     Route: 042
     Dates: start: 20110904, end: 20110909
  60. LIDOCAINE [Concomitant]
     Indication: BIOPSY BONE MARROW
     Dosage: 0.5 ML, QD
     Dates: start: 20110901, end: 20110901
  61. METOPROLOL SUCCINATE [Concomitant]
     Indication: HYPERTENSION
     Dosage: 100 MG, QD
     Route: 048
     Dates: start: 20110924, end: 20110929
  62. DIPHENHYDRAMINE HCL [Concomitant]
     Indication: CHILLS
     Dosage: 25 MG, QD
     Route: 042
     Dates: start: 20110904, end: 20110905
  63. VANCOMYCIN [Concomitant]
     Indication: CELLULITIS
     Dosage: 1250 MG, BID
     Route: 042
     Dates: start: 20110908, end: 20110914
  64. BIOTENE [Concomitant]
     Indication: PROPHYLAXIS
     Dosage: 15 ML, TID
     Route: 048
     Dates: start: 20110928, end: 20111017
  65. METRONIDAZOLE [Concomitant]
     Indication: DIARRHOEA
     Dosage: 500 MG, TID
     Route: 042
     Dates: start: 20110830, end: 20110831
  66. CEFEPIME [Concomitant]
     Indication: PYREXIA
     Dosage: 2 G, BID
     Route: 042
     Dates: start: 20110929, end: 20110930
  67. FUROSEMIDE [Concomitant]
     Dosage: 40 MG, QD
     Route: 048
     Dates: start: 20110925, end: 20110929
  68. POTASSIUM CHLORIDE [Concomitant]
     Indication: SUPPLEMENTATION THERAPY
     Dosage: 60 MEQ, QD
     Route: 048
     Dates: start: 20110918, end: 20111005
  69. POTASSIUM CHLORIDE [Concomitant]
     Dosage: 10 MEQ, QD
     Route: 042
     Dates: start: 20111002, end: 20111002
  70. DIGOXIN [Concomitant]
     Indication: TACHYPNOEA
     Dosage: 500 MG, QD
     Route: 048
     Dates: start: 20110929, end: 20110929
  71. DIGOXIN [Concomitant]
     Indication: ATRIAL FIBRILLATION
     Dosage: 250 MG, BID
     Route: 042
     Dates: start: 20110930, end: 20110930

REACTIONS (35)
  - PNEUMONIA [None]
  - DEPRESSION [None]
  - CLOSTRIDIUM DIFFICILE COLITIS [None]
  - CHILLS [None]
  - PLEURAL EFFUSION [None]
  - HEPATOMEGALY [None]
  - INSOMNIA [None]
  - PYREXIA [None]
  - DEEP VEIN THROMBOSIS [None]
  - RASH ERYTHEMATOUS [None]
  - GENERALISED OEDEMA [None]
  - ARTHRALGIA [None]
  - DIZZINESS [None]
  - LACTIC ACIDOSIS [None]
  - TACHYPNOEA [None]
  - TACHYCARDIA [None]
  - HYPOAESTHESIA [None]
  - RESPIRATORY FAILURE [None]
  - MUSCLE HAEMORRHAGE [None]
  - PHLEBITIS [None]
  - ACQUIRED DIAPHRAGMATIC EVENTRATION [None]
  - PAIN IN EXTREMITY [None]
  - CONSTIPATION [None]
  - DYSPEPSIA [None]
  - NAUSEA [None]
  - PULMONARY OEDEMA [None]
  - OEDEMA PERIPHERAL [None]
  - PRODUCTIVE COUGH [None]
  - POST-TRAUMATIC PAIN [None]
  - BACK PAIN [None]
  - STREPTOCOCCAL BACTERAEMIA [None]
  - HYPOXIA [None]
  - HALLUCINATION [None]
  - DELIRIUM [None]
  - MENTAL STATUS CHANGES [None]
